FAERS Safety Report 10504572 (Version 1)
Quarter: 2014Q4

REPORT INFORMATION
  Report Type: Spontaneous
  Country: US (occurrence: None)
  Receive Date: 20141007
  Receipt Date: 20141007
  Transmission Date: 20150528
  Serious: Yes (Disabling, Other)
  Sender: FDA-Public Use
  Company Number: None

PATIENT
  Age: 49 Year
  Sex: Female
  Weight: 61.24 kg

DRUGS (2)
  1. KENALOG [Suspect]
     Active Substance: TRIAMCINOLONE ACETONIDE
     Indication: ARTHRALGIA
     Dosage: INJECTED INTO SPINAL AREA AS NEEDED
     Dates: start: 20121021, end: 20140707
  2. KENALOG [Suspect]
     Active Substance: TRIAMCINOLONE ACETONIDE
     Indication: MUSCULOSKELETAL PAIN
     Dosage: INJECTED INTO SPINAL AREA AS NEEDED
     Dates: start: 20121021, end: 20140707

REACTIONS (11)
  - Flushing [None]
  - Hot flush [None]
  - Contusion [None]
  - Weight increased [None]
  - Alopecia [None]
  - Insomnia [None]
  - Menstrual disorder [None]
  - Night sweats [None]
  - Skin atrophy [None]
  - Anxiety [None]
  - Palpitations [None]

NARRATIVE: CASE EVENT DATE: 20140707
